FAERS Safety Report 7050992-X (Version None)
Quarter: 2010Q4

REPORT INFORMATION
  Report Type: 
  Country: None (occurrence: None)
  Receive Date: 20101019
  Receipt Date: 20101008
  Transmission Date: 20110411
  Serious: Yes (Other)
  Sender: FDA-Public Use
  Company Number: US-JNJCH-2010012311

PATIENT
  Sex: Male
  Weight: 20.4 kg

DRUGS (5)
  1. ZYRTEC [Suspect]
     Indication: MALAISE
     Dosage: TEXT:UNKNOWN
     Route: 048
  2. CHILDREN'S MOTRIN [Suspect]
     Indication: MALAISE
     Dosage: TEXT:UNKNOWN
     Route: 048
  3. CHILDREN'S TYLENOL SUSPENSION [Suspect]
     Indication: MALAISE
     Dosage: TEXT:UNKNOWN
     Route: 048
  4. MUCINEX [Concomitant]
     Indication: PRODUCT USED FOR UNKNOWN INDICATION
     Dosage: TEXT:UNKNOWN
     Route: 065
  5. COUGH AND COLD PREPARATIONS [Concomitant]
     Indication: NASOPHARYNGITIS
     Dosage: TEXT:UNKNOWN
     Route: 065

REACTIONS (3)
  - PRODUCT QUALITY ISSUE [None]
  - PYREXIA [None]
  - SINUS DISORDER [None]
